FAERS Safety Report 4837566-3 (Version None)
Quarter: 2005Q4

REPORT INFORMATION
  Report Type: 
  Country: None (occurrence: None)
  Receive Date: 20051128
  Receipt Date: 20051118
  Transmission Date: 20060501
  Serious: Yes (Hospitalization)
  Sender: FDA-Public Use
  Company Number: GB-BRISTOL-MYERS SQUIBB COMPANY-13186218

PATIENT
  Age: 79 Year
  Sex: Male
  Weight: 59 kg

DRUGS (6)
  1. CISPLATIN [Suspect]
     Indication: NON-SMALL CELL LUNG CANCER
     Route: 042
     Dates: start: 20051003, end: 20051003
  2. VINORELBINE [Suspect]
     Indication: NON-SMALL CELL LUNG CANCER
     Route: 042
     Dates: start: 20051003, end: 20051012
  3. PANTOPRAZOLE [Concomitant]
     Indication: DUODENAL ULCER
     Route: 042
     Dates: start: 20051022, end: 20051026
  4. CYCLIZINE [Concomitant]
     Indication: VOMITING
     Route: 042
     Dates: start: 20051022, end: 20051024
  5. ATROVENT [Concomitant]
     Indication: CHRONIC OBSTRUCTIVE PULMONARY DISEASE
     Route: 055
  6. SERETIDE [Concomitant]
     Indication: CHRONIC OBSTRUCTIVE PULMONARY DISEASE
     Route: 055

REACTIONS (7)
  - CREPITATIONS [None]
  - HEART RATE INCREASED [None]
  - INTESTINAL OBSTRUCTION [None]
  - NAUSEA [None]
  - NEUTROPENIC SEPSIS [None]
  - PYREXIA [None]
  - VOMITING [None]
